FAERS Safety Report 24781164 (Version 1)
Quarter: 2024Q4

REPORT INFORMATION
  Report Type: Report from Study
  Country: CO (occurrence: CO)
  Receive Date: 20241227
  Receipt Date: 20241227
  Transmission Date: 20250115
  Serious: Yes (Other)
  Sender: NOVARTIS
  Company Number: CO-002147023-NVSC2023CO228456

PATIENT
  Sex: Female
  Weight: 64 kg

DRUGS (5)
  1. COSENTYX [Suspect]
     Active Substance: SECUKINUMAB
     Indication: Psoriasis
     Dosage: 300 MG, QMO
     Route: 058
     Dates: start: 20230316, end: 202310
  2. COSENTYX [Suspect]
     Active Substance: SECUKINUMAB
     Indication: Psoriatic arthropathy
     Dosage: UNK
     Route: 065
     Dates: start: 20230905
  3. COSENTYX [Suspect]
     Active Substance: SECUKINUMAB
     Dosage: UNK
     Route: 065
     Dates: start: 20240205
  4. COSENTYX [Suspect]
     Active Substance: SECUKINUMAB
     Dosage: 300 MG, QMO
     Route: 058
  5. COSENTYX [Suspect]
     Active Substance: SECUKINUMAB
     Dosage: UNK
     Route: 065

REACTIONS (18)
  - Foot deformity [Unknown]
  - Psoriatic arthropathy [Unknown]
  - Arthralgia [Recovering/Resolving]
  - Pain in extremity [Unknown]
  - Chillblains [Unknown]
  - Drug intolerance [Unknown]
  - Inflammation [Unknown]
  - Arthritis [Unknown]
  - Illness [Unknown]
  - Viral infection [Not Recovered/Not Resolved]
  - Malaise [Unknown]
  - Mobility decreased [Unknown]
  - Adverse event [Unknown]
  - Alopecia [Not Recovered/Not Resolved]
  - Lip exfoliation [Unknown]
  - Tongue exfoliation [Unknown]
  - Speech disorder [Unknown]
  - Drug ineffective [Unknown]
